FAERS Safety Report 20566208 (Version 1)
Quarter: 2022Q1

REPORT INFORMATION
  Report Type: Spontaneous
  Country: US (occurrence: None)
  Receive Date: 20220307
  Receipt Date: 20220307
  Transmission Date: 20220424
  Serious: Yes (Other)
  Sender: FDA-Public Use
  Company Number: None

PATIENT
  Age: 29 Year
  Sex: Female
  Weight: 58.5 kg

DRUGS (3)
  1. DROSPIRENONE AND ETHINYL ESTRADIOL [Suspect]
     Active Substance: DROSPIRENONE\ETHINYL ESTRADIOL
     Indication: Migraine
     Dosage: FREQUENCY : DAILY;?
     Route: 048
     Dates: start: 20220114
  2. DROSPIRENONE AND ETHINYL ESTRADIOL [Suspect]
     Active Substance: DROSPIRENONE\ETHINYL ESTRADIOL
     Indication: Acne cystic
  3. DROSPIRENONE AND ETHINYL ESTRADIOL [Suspect]
     Active Substance: DROSPIRENONE\ETHINYL ESTRADIOL
     Indication: Contraception

REACTIONS (8)
  - Heavy menstrual bleeding [None]
  - Product substitution issue [None]
  - Muscle spasms [None]
  - Night sweats [None]
  - Fatigue [None]
  - Mood swings [None]
  - Diarrhoea [None]
  - Haemorrhage [None]

NARRATIVE: CASE EVENT DATE: 20220210
